FAERS Safety Report 19999610 (Version 1)
Quarter: 2021Q4

REPORT INFORMATION
  Report Type: Spontaneous
  Country: US (occurrence: US)
  Receive Date: 20211026
  Receipt Date: 20211026
  Transmission Date: 20220303
  Serious: No
  Sender: FDA-Public Use
  Company Number: 2021A767360

PATIENT
  Sex: Male

DRUGS (2)
  1. CRESTOR [Suspect]
     Active Substance: ROSUVASTATIN CALCIUM
     Dosage: UNKNOWN
     Route: 048
     Dates: start: 2018
  2. ROSUVASTATIN [Suspect]
     Active Substance: ROSUVASTATIN
     Route: 048
     Dates: start: 2021

REACTIONS (10)
  - Ill-defined disorder [Unknown]
  - Musculoskeletal stiffness [Unknown]
  - Blood cholesterol abnormal [Unknown]
  - Illness [Unknown]
  - Sleep disorder [Unknown]
  - Tenderness [Unknown]
  - Lethargy [Unknown]
  - Headache [Unknown]
  - Musculoskeletal chest pain [Unknown]
  - Liver tenderness [Unknown]
